FAERS Safety Report 25514792 (Version 2)
Quarter: 2025Q3

REPORT INFORMATION
  Report Type: Report from Study
  Country: US (occurrence: US)
  Receive Date: 20250703
  Receipt Date: 20250716
  Transmission Date: 20251020
  Serious: No
  Sender: MALLINCKRODT
  Company Number: US-MALLINCKRODT-MNK202503515

PATIENT
  Sex: Female

DRUGS (4)
  1. CORTICOTROPIN [Suspect]
     Active Substance: CORTICOTROPIN
     Indication: Ocular pemphigoid
  2. RITUXIMAB [Concomitant]
     Active Substance: RITUXIMAB
  3. PREDNISONE [Concomitant]
     Active Substance: PREDNISONE
  4. XOLAIR [Concomitant]
     Active Substance: OMALIZUMAB

REACTIONS (5)
  - Chest discomfort [Unknown]
  - Oesophageal spasm [Unknown]
  - Muscle spasms [Unknown]
  - Fluid retention [Unknown]
  - Cortisol increased [Unknown]
